FAERS Safety Report 12041107 (Version 4)
Quarter: 2016Q2

REPORT INFORMATION
  Report Type: Spontaneous
  Country: US (occurrence: US)
  Receive Date: 20160208
  Receipt Date: 20160505
  Transmission Date: 20160815
  Serious: No
  Sender: FDA-Public Use
  Company Number: US-PFIZER INC-2016070934

PATIENT
  Sex: Female

DRUGS (10)
  1. LYRICA [Suspect]
     Active Substance: PREGABALIN
     Indication: MYOSITIS
  2. TRAMADOL. [Concomitant]
     Active Substance: TRAMADOL
     Dosage: 50 MG, AS NEEDED (QID)
  3. AMITRIPTYLINE [Concomitant]
     Active Substance: AMITRIPTYLINE
     Indication: PAIN
     Dosage: 1 DF, 1X/DAY (BEDTIME)
  4. LYRICA [Suspect]
     Active Substance: PREGABALIN
     Indication: SPINAL PAIN
     Dosage: 100 MG, 3X/DAY
     Route: 048
     Dates: start: 2010
  5. OMEPRAZOLE. [Concomitant]
     Active Substance: OMEPRAZOLE
     Indication: GASTROOESOPHAGEAL REFLUX DISEASE
     Dosage: 10 MG, UNK
  6. LYRICA [Suspect]
     Active Substance: PREGABALIN
     Indication: MYALGIA
     Dosage: 200 MG, 1X/DAY [ONCE DAILY]
     Route: 048
  7. LYRICA [Suspect]
     Active Substance: PREGABALIN
     Indication: PAIN
  8. LYRICA [Suspect]
     Active Substance: PREGABALIN
     Indication: NEURALGIA
  9. TRAMADOL. [Concomitant]
     Active Substance: TRAMADOL
     Indication: PAIN
     Dosage: 50 MG, 4X/DAY
  10. AMITRIPTYLINE [Concomitant]
     Active Substance: AMITRIPTYLINE
     Dosage: 25 MG, DAILY

REACTIONS (4)
  - Drug withdrawal syndrome [Unknown]
  - Night sweats [Unknown]
  - Gastric disorder [Unknown]
  - Chills [Unknown]
